FAERS Safety Report 8820690 (Version 1)
Quarter: 2012Q4

REPORT INFORMATION
  Report Type: 
  Country: DE (occurrence: DE)
  Receive Date: 20121002
  Receipt Date: 20121002
  Transmission Date: 20130627
  Serious: Yes (Hospitalization)
  Sender: FDA-Public Use
  Company Number: DE-ARROW-2012-16367

PATIENT
  Age: 87 Year
  Sex: Female
  Weight: 46 kg

DRUGS (5)
  1. RISPERIDONE (UNKNOWN) [Suspect]
     Indication: CONFUSIONAL STATE
     Dosage: 0.5 mg, UNK
     Route: 048
     Dates: start: 201205, end: 201205
  2. METAMIZOL /06276702/ [Suspect]
     Indication: BACK PAIN
     Dosage: 60 Gtt drops daily
     Route: 048
     Dates: start: 20120502, end: 20120509
  3. PANTOPRAZOL [Concomitant]
     Indication: GASTROINTESTINAL ANGIODYSPLASIA
     Dosage: 20 mg UNK
     Route: 065
  4. AMLODIPIN                          /00972401/ [Concomitant]
     Indication: HYPERTENSION
     Dosage: 5 mg UNK
     Route: 065
  5. LORAZEPAM [Concomitant]
     Indication: PRODUCT USED FOR UNKNOWN INDICATION
     Dosage: 0.5 mg UNK
     Route: 048
     Dates: start: 20120507, end: 20120508

REACTIONS (1)
  - Pancytopenia [Not Recovered/Not Resolved]
